FAERS Safety Report 10914143 (Version 3)
Quarter: 2015Q2

REPORT INFORMATION
  Report Type: Spontaneous
  Country: JP (occurrence: JP)
  Receive Date: 20150313
  Receipt Date: 20150408
  Transmission Date: 20150821
  Serious: Yes (Hospitalization, Other)
  Sender: FDA-Public Use
  Company Number: JP-B.I. PHARMACEUTICALS,INC./RIDGEFIELD-2015-BI-12843NB

PATIENT
  Age: 78 Year
  Sex: Male

DRUGS (9)
  1. AMLODIN [Concomitant]
     Active Substance: AMLODIPINE BESYLATE
     Indication: PRODUCT USED FOR UNKNOWN INDICATION
     Dosage: 10 MG
     Route: 048
  2. MICARDIS [Suspect]
     Active Substance: TELMISARTAN
     Dosage: 160 MG
     Route: 048
     Dates: start: 20150306, end: 20150306
  3. ROCEPHIN [Concomitant]
     Active Substance: CEFTRIAXONE SODIUM
     Indication: PRODUCT USED FOR UNKNOWN INDICATION
     Route: 042
     Dates: end: 20150225
  4. MICARDIS [Suspect]
     Active Substance: TELMISARTAN
     Dosage: 20 MG
     Route: 048
     Dates: start: 20150315
  5. MAGLAX [Suspect]
     Active Substance: MAGNESIUM OXIDE
     Indication: PRODUCT USED FOR UNKNOWN INDICATION
     Route: 048
     Dates: end: 20150307
  6. MICARDIS [Suspect]
     Active Substance: TELMISARTAN
     Dosage: 120 MG
     Route: 048
     Dates: start: 20150307, end: 20150307
  7. CEFTAZIDIME HYDRATE [Concomitant]
     Active Substance: CEFTAZIDIME
     Indication: PRODUCT USED FOR UNKNOWN INDICATION
     Route: 048
     Dates: start: 20150225, end: 20150304
  8. MICARDIS [Suspect]
     Active Substance: TELMISARTAN
     Indication: HYPERTENSION
     Dosage: 80 MG
     Route: 048
  9. ALDACTONE [Concomitant]
     Active Substance: SPIRONOLACTONE
     Indication: PRODUCT USED FOR UNKNOWN INDICATION
     Route: 065

REACTIONS (4)
  - Accidental overdose [Unknown]
  - Lung neoplasm malignant [Not Recovered/Not Resolved]
  - Vomiting [Recovered/Resolved]
  - Diarrhoea [Recovered/Resolved]

NARRATIVE: CASE EVENT DATE: 20150305
